FAERS Safety Report 22594732 (Version 9)
Quarter: 2024Q4

REPORT INFORMATION
  Report Type: Report from Study
  Country: CA (occurrence: CA)
  Receive Date: 20230613
  Receipt Date: 20241230
  Transmission Date: 20250115
  Serious: Yes (Hospitalization, Other)
  Sender: JOHNSON AND JOHNSON
  Company Number: CA-JNJFOC-20230618998

PATIENT
  Age: 56 Year
  Sex: Female
  Weight: 42 kg

DRUGS (9)
  1. REMICADE [Suspect]
     Active Substance: INFLIXIMAB
     Indication: Crohn^s disease
     Dosage: ON 07-JUN-2023, THE PATIENT RECEIVED 2ND 300 MG INFLIXIMAB INFUSION AND PARTIAL HARVEY-BRADSHAW WAS
     Route: 041
     Dates: start: 20230525
  2. REMICADE [Suspect]
     Active Substance: INFLIXIMAB
     Dosage: THERAPY START DATE ALSO GIVEN 26-MAY-2023
     Route: 041
     Dates: start: 2023
  3. REMICADE [Suspect]
     Active Substance: INFLIXIMAB
     Dosage: DOCTOR REQUESTED MAINTENANCE FREQUENCY TO BE 4 WEEKS
     Route: 041
     Dates: start: 2023
  4. REMICADE [Suspect]
     Active Substance: INFLIXIMAB
     Route: 041
     Dates: start: 2023
  5. REMICADE [Suspect]
     Active Substance: INFLIXIMAB
     Route: 041
     Dates: start: 20230525
  6. REMICADE [Suspect]
     Active Substance: INFLIXIMAB
     Route: 041
  7. REMICADE [Suspect]
     Active Substance: INFLIXIMAB
     Route: 041
     Dates: start: 20230525
  8. CIPRO [Suspect]
     Active Substance: CIPROFLOXACIN HYDROCHLORIDE
     Indication: Product used for unknown indication
     Route: 065
     Dates: start: 2023
  9. AZATHIOPRINE [Concomitant]
     Active Substance: AZATHIOPRINE
     Indication: Crohn^s disease
     Route: 048

REACTIONS (13)
  - Oesophagitis [Recovered/Resolved]
  - Ulcer [Recovered/Resolved]
  - Myocardial infarction [Recovered/Resolved]
  - Clostridium difficile infection [Recovered/Resolved]
  - Crohn^s disease [Not Recovered/Not Resolved]
  - Dehydration [Recovering/Resolving]
  - Post procedural complication [Recovering/Resolving]
  - Fistula [Recovering/Resolving]
  - Abscess [Recovering/Resolving]
  - Off label use [Unknown]
  - Anal fistula [Unknown]
  - Mouth ulceration [Not Recovered/Not Resolved]
  - Abdominal pain [Unknown]

NARRATIVE: CASE EVENT DATE: 20230101
